FAERS Safety Report 6503432-0 (Version None)
Quarter: 2009Q4

REPORT INFORMATION
  Report Type: 
  Country: None (occurrence: None)
  Receive Date: 20091217
  Receipt Date: 20091208
  Transmission Date: 20100525
  Serious: Yes (Hospitalization)
  Sender: FDA-Public Use
  Company Number: PL-CELGENEUS-129-50794-09120700

PATIENT
  Sex: Male

DRUGS (5)
  1. VIDAZA [Suspect]
     Route: 058
     Dates: start: 20091103, end: 20091107
  2. VIDAZA [Suspect]
     Route: 058
     Dates: start: 20090601
  3. CYCLONAMINE [Concomitant]
     Indication: DRUG USE FOR UNKNOWN INDICATION
     Route: 065
  4. ESSENTIALE PHOSPHOLIPID [Concomitant]
     Indication: DRUG USE FOR UNKNOWN INDICATION
     Route: 065
  5. OMEPRAZOLUM [Concomitant]
     Indication: DRUG USE FOR UNKNOWN INDICATION
     Route: 065

REACTIONS (1)
  - ANGINA PECTORIS [None]
